FAERS Safety Report 7821325-3 (Version None)
Quarter: 2011Q4

REPORT INFORMATION
  Report Type: 
  Country: None (occurrence: None)
  Receive Date: 20111018
  Receipt Date: 20110801
  Transmission Date: 20120403
  Serious: No
  Sender: FDA-Public Use
  Company Number: US-ASTRAZENECA-2011SE35654

PATIENT
  Age: 69 Year
  Sex: Female

DRUGS (2)
  1. SINGULAIR [Concomitant]
  2. SYMBICORT [Suspect]
     Indication: ASTHMA
     Dosage: ONCE DAILY
     Route: 055

REACTIONS (5)
  - ASTHMA [None]
  - SLEEP APNOEA SYNDROME [None]
  - DRUG DOSE OMISSION [None]
  - NASOPHARYNGITIS [None]
  - DYSPNOEA [None]
